FAERS Safety Report 5987354-X (Version None)
Quarter: 2008Q4

REPORT INFORMATION
  Report Type: 
  Country: None (occurrence: None)
  Receive Date: 20081209
  Receipt Date: 20081201
  Transmission Date: 20090506
  Serious: Yes (Other)
  Sender: FDA-Public Use
  Company Number: PHHY2008GB25897

PATIENT
  Sex: Female

DRUGS (7)
  1. TEGRETOL [Suspect]
     Indication: PAIN
     Dosage: 100 MG, BID
     Route: 048
     Dates: start: 20080718, end: 20080804
  2. TEGRETOL [Suspect]
     Indication: NEURALGIA
     Dosage: 200 MG
  3. AMITRIPTYLINE HCL [Concomitant]
     Indication: PAIN
     Dosage: 25 MG, PRN
     Route: 048
     Dates: start: 20080716
  4. ASPIRIN [Concomitant]
     Indication: CARDIOVASCULAR EVENT PROPHYLAXIS
     Dosage: 75 MG, UNK
  5. ACETAMINOPHEN W/ CODEINE [Concomitant]
     Indication: PAIN
     Dosage: UNK, QDS
     Route: 048
     Dates: start: 20080716
  6. FLOXACILLIN SODIUM [Concomitant]
     Indication: INFECTION
     Dosage: 250 MG, QID
     Route: 048
     Dates: start: 20070725
  7. PENICILLIN [Concomitant]
     Indication: INFECTION
     Dosage: 250 MG, QID
     Route: 048
     Dates: start: 20070725

REACTIONS (8)
  - EMOTIONAL DISTRESS [None]
  - MOBILITY DECREASED [None]
  - ONYCHOMADESIS [None]
  - PAIN IN EXTREMITY [None]
  - RASH ERYTHEMATOUS [None]
  - RASH PRURITIC [None]
  - SKIN EXFOLIATION [None]
  - SKIN ULCER [None]
